FAERS Safety Report 8604028-7 (Version None)
Quarter: 2012Q3

REPORT INFORMATION
  Report Type: 
  Country: None (occurrence: None)
  Receive Date: 20120820
  Receipt Date: 20120809
  Transmission Date: 20120928
  Serious: No
  Sender: FDA-Public Use
  Company Number: US-BIOGENIDEC-2012BI030870

PATIENT
  Sex: Female

DRUGS (4)
  1. TYSABRI [Suspect]
     Route: 042
     Dates: start: 20100217, end: 20100325
  2. TYSABRI [Suspect]
     Route: 042
     Dates: start: 20101006
  3. TYSABRI [Suspect]
     Indication: MULTIPLE SCLEROSIS
     Route: 042
     Dates: start: 20070905, end: 20080716
  4. AVONEX [Concomitant]
     Indication: MULTIPLE SCLEROSIS
     Route: 030
     Dates: start: 20101001

REACTIONS (6)
  - GAIT DISTURBANCE [None]
  - URTICARIA [None]
  - TREMOR [None]
  - VISUAL IMPAIRMENT [None]
  - NASOPHARYNGITIS [None]
  - DYSARTHRIA [None]
